FAERS Safety Report 9123020 (Version 1)
Quarter: 2013Q1

REPORT INFORMATION
  Report Type: Spontaneous
  Country: DE (occurrence: DE)
  Receive Date: 20130114
  Receipt Date: 20130114
  Transmission Date: 20140127
  Serious: Yes (Life-Threatening)
  Sender: FDA-Public Use
  Company Number: DE-BAYER-2012-117311

PATIENT
  Age: 96 Year
  Sex: Female
  Weight: 70 kg

DRUGS (1)
  1. AVALOX [Suspect]
     Dosage: UNK
     Route: 042

REACTIONS (4)
  - Drug intolerance [None]
  - Circulatory collapse [None]
  - Vomiting [None]
  - Hyperhidrosis [None]
